FAERS Safety Report 21321746 (Version 4)
Quarter: 2022Q4

REPORT INFORMATION
  Report Type: Spontaneous
  Country: FR (occurrence: FR)
  Receive Date: 20220912
  Receipt Date: 20221103
  Transmission Date: 20230113
  Serious: Yes (Death, Other)
  Sender: FDA-Public Use
  Company Number: FR-INCYTE CORPORATION-2022IN008610

PATIENT

DRUGS (1)
  1. TAFASITAMAB [Suspect]
     Active Substance: TAFASITAMAB
     Indication: Diffuse large B-cell lymphoma
     Dosage: 920 MILLIGRAM, WEEKLY THEN EVERY 15 DAYS
     Route: 042
     Dates: start: 20210624, end: 20220406

REACTIONS (4)
  - Diffuse large B-cell lymphoma [Fatal]
  - Disease progression [Fatal]
  - Cancer with a high tumour mutational burden [Fatal]
  - Neoplasm progression [Unknown]
